FAERS Safety Report 22044855 (Version 1)
Quarter: 2023Q1

REPORT INFORMATION
  Report Type: Spontaneous
  Country: BR (occurrence: None)
  Receive Date: 20230228
  Receipt Date: 20230228
  Transmission Date: 20230418
  Serious: Yes (Other)
  Sender: FDA-Public Use
  Company Number: BR-Merck Healthcare KGaA-9385777

PATIENT
  Sex: Female

DRUGS (1)
  1. EUTHYROX [Suspect]
     Active Substance: LEVOTHYROXINE SODIUM
     Indication: Product used for unknown indication
     Dosage: DATE OF THE BEGINNING OF THE TREATMENT: APPROXIMATELY 20 YEARS AGO
     Route: 048

REACTIONS (2)
  - Diabetes mellitus [Not Recovered/Not Resolved]
  - Product taste abnormal [Not Recovered/Not Resolved]
